FAERS Safety Report 24625060 (Version 1)
Quarter: 2024Q4

REPORT INFORMATION
  Report Type: Spontaneous
  Country: KR (occurrence: KR)
  Receive Date: 20241115
  Receipt Date: 20241115
  Transmission Date: 20250115
  Serious: Yes (Other)
  Sender: ELI LILLY AND COMPANY
  Company Number: KR-ELI_LILLY_AND_COMPANY-KR202411002498

PATIENT
  Sex: Female

DRUGS (2)
  1. TERIPARATIDE [Suspect]
     Active Substance: TERIPARATIDE
     Indication: Stress fracture
     Dosage: 20 UG, DAILY
     Route: 058
     Dates: start: 2022
  2. TERIPARATIDE [Suspect]
     Active Substance: TERIPARATIDE
     Indication: Compression fracture
     Dosage: 20 UG, DAILY
     Route: 058
     Dates: start: 202403, end: 202406

REACTIONS (1)
  - Spinal compression fracture [Recovered/Resolved]
